FAERS Safety Report 16045072 (Version 1)
Quarter: 2019Q1

REPORT INFORMATION
  Report Type: Spontaneous
  Country: US (occurrence: US)
  Receive Date: 20190307
  Receipt Date: 20190307
  Transmission Date: 20190418
  Serious: Yes (Hospitalization)
  Sender: FDA-Public Use
  Company Number: PHEH2019US009614

PATIENT
  Age: 5 Year
  Sex: Female

DRUGS (2)
  1. LANSOPRAZOLE. [Suspect]
     Active Substance: LANSOPRAZOLE
     Indication: CYSTIC FIBROSIS
     Dosage: 30 MG, QD
     Route: 048
  2. CETIRIZINE HCL [Suspect]
     Active Substance: CETIRIZINE HYDROCHLORIDE
     Indication: CYSTIC FIBROSIS
     Dosage: 4 ML, UNK(DAILY AS NEEDED FOR NASAL DRAINAGE)
     Route: 048

REACTIONS (3)
  - Cystic fibrosis [Unknown]
  - Condition aggravated [Unknown]
  - Bacterial test [Unknown]

NARRATIVE: CASE EVENT DATE: 20190227
